FAERS Safety Report 6314865-X (Version None)
Quarter: 2009Q3

REPORT INFORMATION
  Report Type: 
  Country: None (occurrence: None)
  Receive Date: 20090817
  Receipt Date: 20090803
  Transmission Date: 20100115
  Serious: Yes (Other)
  Sender: FDA-Public Use
  Company Number: 8048622

PATIENT
  Age: 60 Year
  Sex: Male

DRUGS (1)
  1. KEPPRA [Suspect]
     Indication: EPILEPSY
     Dosage: 500 MG 2/D PO
     Route: 048
     Dates: start: 20080904

REACTIONS (2)
  - HAEMOGLOBIN DECREASED [None]
  - PLATELET COUNT DECREASED [None]
